FAERS Safety Report 9167033 (Version 7)
Quarter: 2013Q2

REPORT INFORMATION
  Report Type: Spontaneous
  Country: US (occurrence: US)
  Receive Date: 20130318
  Receipt Date: 20130528
  Transmission Date: 20140414
  Serious: No
  Sender: FDA-Public Use
  Company Number: US-009507513-1303USA002784

PATIENT
  Sex: Female
  Weight: 95.24 kg

DRUGS (1)
  1. IMPLANON [Suspect]
     Dosage: 1 IMPLANT, UNK
     Route: 059
     Dates: start: 20120821

REACTIONS (4)
  - Menorrhagia [Unknown]
  - Medical device complication [Unknown]
  - Cyst [Unknown]
  - Feeling abnormal [Unknown]
